FAERS Safety Report 20799343 (Version 3)
Quarter: 2022Q2

REPORT INFORMATION
  Report Type: Spontaneous
  Country: FR (occurrence: FR)
  Receive Date: 20220508
  Receipt Date: 20220607
  Transmission Date: 20220721
  Serious: Yes (Other)
  Sender: FDA-Public Use
  Company Number: FR-AMERICAN REGENT INC-2022001245

PATIENT
  Age: 60 Year
  Sex: Male
  Weight: 54 kg

DRUGS (2)
  1. VENOFER [Suspect]
     Active Substance: IRON SUCROSE
     Indication: Product used for unknown indication
     Dosage: 300 MILLIGRAM X 2 ADMINISTRATION (600 MG)
     Route: 042
     Dates: start: 2019
  2. VENOFER [Suspect]
     Active Substance: IRON SUCROSE
     Dosage: 2 ADMINISTRATION AN INTERVAL OF 48  HOURS (300 MG)
     Dates: start: 2019

REACTIONS (2)
  - Deep vein thrombosis [Unknown]
  - Superficial vein thrombosis [Unknown]

NARRATIVE: CASE EVENT DATE: 20190101
